FAERS Safety Report 4435713-9 (Version None)
Quarter: 2004Q3

REPORT INFORMATION
  Report Type: 
  Country: None (occurrence: None)
  Receive Date: 20040726
  Receipt Date: 20040422
  Transmission Date: 20050211
  Serious: No
  Sender: FDA-Public Use
  Company Number: USA040465763

PATIENT
  Age: 75 Year
  Sex: Female

DRUGS (1)
  1. FORTEO [Suspect]
     Dates: start: 20040301

REACTIONS (4)
  - ABDOMINAL PAIN UPPER [None]
  - CYSTITIS [None]
  - INCREASED TENDENCY TO BRUISE [None]
  - RASH ERYTHEMATOUS [None]
